FAERS Safety Report 25150073 (Version 1)
Quarter: 2025Q2

REPORT INFORMATION
  Report Type: Spontaneous
  Country: AU (occurrence: AU)
  Receive Date: 20250402
  Receipt Date: 20250402
  Transmission Date: 20250716
  Serious: Yes (Hospitalization, Other)
  Sender: GALPHARM INTERNATIONAL
  Company Number: None

PATIENT
  Age: 75 Year
  Sex: Female

DRUGS (18)
  1. ACETAMINOPHEN [Suspect]
     Active Substance: ACETAMINOPHEN
     Indication: Back pain
     Route: 065
  2. FLUCLOXACILLIN [Suspect]
     Active Substance: FLUCLOXACILLIN
     Indication: Staphylococcal bacteraemia
     Route: 040
  3. FLUCLOXACILLIN [Suspect]
     Active Substance: FLUCLOXACILLIN
  4. FLUCLOXACILLIN [Suspect]
     Active Substance: FLUCLOXACILLIN
  5. ACETAMINOPHEN\CODEINE\DOXYLAMINE [Suspect]
     Active Substance: ACETAMINOPHEN\CODEINE\DOXYLAMINE
     Indication: Back pain
  6. ALBUTEROL [Concomitant]
     Active Substance: ALBUTEROL
  7. PANTOPRAZOLE [Concomitant]
     Active Substance: PANTOPRAZOLE
  8. CHOLECALCIFEROL [Concomitant]
     Active Substance: CHOLECALCIFEROL
  9. DOCUSATE [Concomitant]
     Active Substance: DOCUSATE
  10. ASPIRIN [Concomitant]
     Active Substance: ASPIRIN
  11. HYDROMORPHONE [Concomitant]
     Active Substance: HYDROMORPHONE
     Indication: Back pain
  12. DENOSUMAB [Concomitant]
     Active Substance: DENOSUMAB
  13. DULOXETINE [Concomitant]
     Active Substance: DULOXETINE
  14. TOPIRAMATE [Concomitant]
     Active Substance: TOPIRAMATE
  15. PREDNISOLONE [Concomitant]
     Active Substance: PREDNISOLONE
  16. DOXYLAMINE [Concomitant]
     Active Substance: DOXYLAMINE
  17. POLYETHYLENE GLYCOLS [Concomitant]
     Active Substance: POLYETHYLENE GLYCOLS
  18. HYDROXOCOBALAMIN [Concomitant]
     Active Substance: HYDROXOCOBALAMIN

REACTIONS (3)
  - Metabolic acidosis [Recovered/Resolved]
  - Pyroglutamic acidosis [Recovered/Resolved]
  - Acute kidney injury [Recovered/Resolved]
